FAERS Safety Report 8320005-8 (Version None)
Quarter: 2012Q2

REPORT INFORMATION
  Report Type: 
  Country: None (occurrence: None)
  Receive Date: 20120427
  Receipt Date: 20120416
  Transmission Date: 20120825
  Serious: Yes (Other)
  Sender: FDA-Public Use
  Company Number: US-BAXTER-2012BAX003184

PATIENT
  Sex: Female
  Weight: 50 kg

DRUGS (5)
  1. GAMMAGARD LIQUID [Suspect]
     Route: 065
     Dates: start: 20120319, end: 20120319
  2. GAMMAGARD LIQUID [Suspect]
     Route: 042
  3. GAMMAGARD LIQUID [Suspect]
     Route: 065
     Dates: start: 20120206, end: 20120206
  4. GAMMAGARD LIQUID [Suspect]
     Route: 065
     Dates: start: 20120227, end: 20120227
  5. GAMMAGARD LIQUID [Suspect]
     Route: 065
     Dates: start: 20111227, end: 20111227

REACTIONS (1)
  - ANAEMIA [None]
